FAERS Safety Report 6254959-0 (Version None)
Quarter: 2009Q3

REPORT INFORMATION
  Report Type: 
  Country: None (occurrence: None)
  Receive Date: 20090702
  Receipt Date: 20090622
  Transmission Date: 20100115
  Serious: Yes (Hospitalization, Disabling)
  Sender: FDA-Public Use
  Company Number: US-MERCK-0903USA04839

PATIENT
  Age: 58 Year
  Sex: Male

DRUGS (9)
  1. FOSAMAX [Suspect]
     Indication: OSTEOPOROSIS PROPHYLAXIS
     Route: 048
     Dates: start: 20020901, end: 20060301
  2. ZOLADEX [Concomitant]
     Indication: PROSTATE CANCER
     Route: 065
     Dates: start: 20010701, end: 20040101
  3. FUROSEMIDE [Concomitant]
     Indication: RENAL DISORDER
     Route: 065
     Dates: start: 20020101, end: 20040101
  4. LEVOTHYROXINE SODIUM [Concomitant]
     Indication: HYPOTHYROIDISM
     Route: 065
     Dates: start: 20020901
  5. SIMVASTATIN [Concomitant]
     Indication: RENAL DISORDER
     Route: 065
     Dates: start: 20020901
  6. LISINOPRIL [Concomitant]
     Indication: RENAL DISORDER
     Route: 065
     Dates: start: 20020901, end: 20040101
  7. CHLORAMBUCIL [Concomitant]
     Indication: RENAL DISORDER
     Route: 065
     Dates: start: 20020901, end: 20030501
  8. DARBEPOETIN ALFA [Concomitant]
     Indication: RENAL DISORDER
     Route: 065
     Dates: start: 20020901, end: 20040101
  9. VITAMIN D (UNSPECIFIED) [Concomitant]
     Indication: RENAL DISORDER
     Route: 065
     Dates: start: 20020901, end: 20060101

REACTIONS (8)
  - EMPHYSEMA [None]
  - IMPAIRED HEALING [None]
  - INFLAMMATORY BOWEL DISEASE [None]
  - ORAL INFECTION [None]
  - ORAL TORUS [None]
  - OSTEONECROSIS [None]
  - RENAL DISORDER [None]
  - STOMATITIS [None]
